FAERS Safety Report 8325134-0 (Version None)
Quarter: 2012Q2

REPORT INFORMATION
  Report Type: 
  Country: None (occurrence: None)
  Receive Date: 20120501
  Receipt Date: 20120320
  Transmission Date: 20120825
  Serious: No
  Sender: FDA-Public Use
  Company Number: US-ABBOTT-12P-163-0916860-00

PATIENT
  Sex: Female
  Weight: 45.4 kg

DRUGS (9)
  1. CREON [Suspect]
     Indication: CHOLECYSTECTOMY
     Dosage: 12000 AND 24000 WITH MEALS
     Dates: start: 20100701
  2. CREON [Suspect]
     Indication: PANCREATECTOMY
     Dosage: 12000 AND 24000 WITH MEALS
  3. FISH OIL [Concomitant]
     Indication: PRODUCT USED FOR UNKNOWN INDICATION
  4. M.V.I. [Concomitant]
     Indication: PRODUCT USED FOR UNKNOWN INDICATION
  5. VITAMIN D [Concomitant]
     Indication: PRODUCT USED FOR UNKNOWN INDICATION
  6. PREDNISONE TAB [Concomitant]
     Indication: ARTHRITIS
  7. CALCIUM [Concomitant]
     Indication: PRODUCT USED FOR UNKNOWN INDICATION
  8. VITAMIN B-12 [Concomitant]
     Indication: PRODUCT USED FOR UNKNOWN INDICATION
  9. MAGNESIUM [Concomitant]
     Indication: ARTHRITIS

REACTIONS (3)
  - ABNORMAL FAECES [None]
  - DRUG EFFECT DECREASED [None]
  - ABDOMINAL DISCOMFORT [None]
